FAERS Safety Report 22246034 (Version 1)
Quarter: 2023Q2

REPORT INFORMATION
  Report Type: Spontaneous
  Country: NO (occurrence: NO)
  Receive Date: 20230424
  Receipt Date: 20230424
  Transmission Date: 20230721
  Serious: Yes (Hospitalization, Other)
  Sender: FDA-Public Use
  Company Number: None

PATIENT
  Age: 35 Year
  Sex: Female

DRUGS (3)
  1. BUPIVACAINE [Suspect]
     Active Substance: BUPIVACAINE
     Dosage: 5.5 ML/T. EQUIVALENT TO BUPIVACAINE 0.7 MG/KG IN CUMULATIVE DOSE, 0.7 MMOL/KG, ONCE IN TOTAL, PHARMA
     Route: 042
     Dates: start: 20230325, end: 20230325
  2. FENTANYL [Concomitant]
     Active Substance: FENTANYL
     Dosage: 5.5 ML, 1 HOUR
     Route: 041
  3. EPINEPHRINE [Concomitant]
     Active Substance: EPINEPHRINE
     Dosage: 5.5 ML, 1 HOUR
     Route: 041

REACTIONS (10)
  - Palpitations [Recovered/Resolved]
  - Wrong product administered [Recovered/Resolved]
  - Incorrect route of product administration [Recovered/Resolved]
  - Hyperacusis [Recovered/Resolved]
  - Pyrexia [Recovered/Resolved]
  - Hyperhidrosis [Recovered/Resolved]
  - Headache [Recovered/Resolved]
  - Restlessness [Recovered/Resolved]
  - Vision blurred [Recovered/Resolved]
  - Nausea [Recovered/Resolved]

NARRATIVE: CASE EVENT DATE: 20230325
